FAERS Safety Report 23130942 (Version 1)
Quarter: 2023Q4

REPORT INFORMATION
  Report Type: Spontaneous
  Country: US (occurrence: US)
  Receive Date: 20231031
  Receipt Date: 20231031
  Transmission Date: 20240110
  Serious: Yes (Other)
  Sender: FDA-Public Use
  Company Number: US-SUNOVION-2023SUN001193

PATIENT

DRUGS (2)
  1. APTIOM [Suspect]
     Active Substance: ESLICARBAZEPINE ACETATE
     Dosage: UNK
     Route: 048
  2. APTIOM [Suspect]
     Active Substance: ESLICARBAZEPINE ACETATE
     Dosage: INCREASED DOSE BY 200 MG
     Route: 048

REACTIONS (2)
  - Petit mal epilepsy [Unknown]
  - Memory impairment [Unknown]

NARRATIVE: CASE EVENT DATE: 20231018
